FAERS Safety Report 5933185-6 (Version None)
Quarter: 2008Q4

REPORT INFORMATION
  Report Type: 
  Country: None (occurrence: None)
  Receive Date: 20081028
  Receipt Date: 20081017
  Transmission Date: 20090506
  Serious: Yes (Other)
  Sender: FDA-Public Use
  Company Number: AU-PFIZER INC-2008088376

PATIENT
  Age: 67 Year
  Sex: Male

DRUGS (2)
  1. CADUET [Suspect]
     Indication: HYPERTENSION
     Dosage: TEXT:10MG/20MG DAILY
     Route: 048
     Dates: start: 20080929, end: 20081013
  2. CADUET [Suspect]
     Indication: HYPERCHOLESTEROLAEMIA

REACTIONS (2)
  - BLOOD UREA INCREASED [None]
  - PITTING OEDEMA [None]
